FAERS Safety Report 17583376 (Version 2)
Quarter: 2020Q2

REPORT INFORMATION
  Report Type: Spontaneous
  Country: JP (occurrence: JP)
  Receive Date: 20200326
  Receipt Date: 20200421
  Transmission Date: 20200713
  Serious: Yes (Death)
  Sender: FDA-Public Use
  Company Number: JP-UCBSA-2020011645

PATIENT
  Sex: Male
  Weight: 54 kg

DRUGS (16)
  1. SYMPROIC [Concomitant]
     Active Substance: NALDEMEDINE
     Route: 048
     Dates: end: 20200223
  2. NARUVEIN [Concomitant]
     Active Substance: HYDROMORPHONE HYDROCHLORIDE
     Dosage: 5.76 MILLIGRAM
     Route: 042
     Dates: start: 20200225, end: 20200225
  3. NARUSUS [Concomitant]
     Active Substance: HYDROMORPHONE HYDROCHLORIDE
     Indication: PRODUCT USED FOR UNKNOWN INDICATION
     Route: 048
     Dates: end: 20200223
  4. SYMPROIC [Concomitant]
     Active Substance: NALDEMEDINE
     Indication: PRODUCT USED FOR UNKNOWN INDICATION
     Route: 048
     Dates: end: 20200223
  5. VIMPAT [Suspect]
     Active Substance: LACOSAMIDE
     Indication: PRODUCT USED FOR UNKNOWN INDICATION
     Dosage: 100MG DAILY
     Route: 048
     Dates: end: 20200223
  6. E FEN [Concomitant]
     Indication: PRODUCT USED FOR UNKNOWN INDICATION
     Route: 048
     Dates: end: 20200220
  7. E FEN [Concomitant]
     Dosage: 1600 MICROGRAM
     Route: 048
     Dates: start: 20200221, end: 20200221
  8. NARUVEIN [Concomitant]
     Active Substance: HYDROMORPHONE HYDROCHLORIDE
     Indication: CANCER PAIN
     Dosage: 5.76 MILLIGRAM
     Route: 042
     Dates: start: 20200224, end: 20200224
  9. E FEN [Concomitant]
     Dosage: 400 MICROGRAM
     Route: 048
     Dates: start: 20200223, end: 20200223
  10. MAGMITT [Concomitant]
     Active Substance: MAGNESIUM OXIDE
     Indication: PRODUCT USED FOR UNKNOWN INDICATION
     Route: 048
     Dates: end: 20200222
  11. MAGMITT [Concomitant]
     Active Substance: MAGNESIUM OXIDE
     Route: 048
     Dates: end: 20200222
  12. GOOFICE [Concomitant]
     Active Substance: ELOBIXIBAT
     Indication: PRODUCT USED FOR UNKNOWN INDICATION
     Route: 048
     Dates: end: 20200223
  13. LINZESS [Concomitant]
     Active Substance: LINACLOTIDE
     Route: 048
     Dates: end: 20200223
  14. GOOFICE [Concomitant]
     Active Substance: ELOBIXIBAT
     Route: 048
     Dates: end: 20200223
  15. LINZESS [Concomitant]
     Active Substance: LINACLOTIDE
     Indication: PRODUCT USED FOR UNKNOWN INDICATION
     Route: 048
     Dates: end: 20200223
  16. E FEN [Concomitant]
     Dosage: 1200 MICROGRAM
     Route: 048
     Dates: start: 20200222, end: 20200222

REACTIONS (1)
  - Neoplasm malignant [Fatal]
